FAERS Safety Report 11203579 (Version 1)
Quarter: 2015Q2

REPORT INFORMATION
  Report Type: Spontaneous
  Country: GB (occurrence: GB)
  Receive Date: 20150619
  Receipt Date: 20150619
  Transmission Date: 20150821
  Serious: Yes (Other)
  Sender: FDA-Public Use
  Company Number: GB-MUNDIPHARMA DS AND PHARMACOVIGILANCE-GBR-2015-0028907

PATIENT
  Age: 62 Year
  Sex: Female

DRUGS (17)
  1. THYROXINE [Concomitant]
     Active Substance: LEVOTHYROXINE
  2. MST CONTINUS TABLETS [Suspect]
     Active Substance: MORPHINE SULFATE
     Indication: ARTHRALGIA
     Dosage: 20 MG, NOCTE
     Route: 048
  3. OMEPRAZOLE. [Concomitant]
     Active Substance: OMEPRAZOLE
  4. GLICLAZIDE [Concomitant]
     Active Substance: GLICLAZIDE
  5. SITAGLIPTIN [Concomitant]
     Active Substance: SITAGLIPTIN
  6. LIDOCAINE. [Concomitant]
     Active Substance: LIDOCAINE
  7. LUMBAR EPIDURAL [Concomitant]
  8. HEART TABLETS [Concomitant]
  9. PIRITON [Concomitant]
     Active Substance: CHLORPHENIRAMINE MALEATE
  10. RAMIPRIL. [Concomitant]
     Active Substance: RAMIPRIL
  11. ORAMORPH SR SUSTAINED RELEASE [Suspect]
     Active Substance: MORPHINE SULFATE
     Indication: PRODUCT USED FOR UNKNOWN INDICATION
     Route: 065
  12. ATORVASTATIN [Concomitant]
     Active Substance: ATORVASTATIN
  13. SACROILIAC INJECTION [Concomitant]
  14. BISOPROLOL [Concomitant]
     Active Substance: BISOPROLOL
  15. NAPROXEN. [Concomitant]
     Active Substance: NAPROXEN
  16. ASPIRIN. [Concomitant]
     Active Substance: ASPIRIN
  17. VITAMIN D                          /00107901/ [Concomitant]
     Active Substance: ERGOCALCIFEROL

REACTIONS (9)
  - Confusional state [Not Recovered/Not Resolved]
  - Somnolence [Not Recovered/Not Resolved]
  - Delirium [Not Recovered/Not Resolved]
  - Inappropriate schedule of drug administration [Not Recovered/Not Resolved]
  - Pain in extremity [Not Recovered/Not Resolved]
  - Memory impairment [Not Recovered/Not Resolved]
  - Musculoskeletal pain [Not Recovered/Not Resolved]
  - Quality of life decreased [Not Recovered/Not Resolved]
  - Hypoaesthesia [Not Recovered/Not Resolved]
